FAERS Safety Report 7694382-5 (Version None)
Quarter: 2011Q3

REPORT INFORMATION
  Report Type: 
  Country: None (occurrence: None)
  Receive Date: 20110819
  Receipt Date: 20110809
  Transmission Date: 20111222
  Serious: Yes (Disabling)
  Sender: FDA-Public Use
  Company Number: GB-ALLERGAN-1110729US

PATIENT
  Age: 76 Year
  Sex: Male

DRUGS (6)
  1. ALPHAGAN [Suspect]
     Indication: GLAUCOMA
     Dosage: 1 DF, BID
     Route: 047
     Dates: start: 20080101, end: 20100212
  2. BENDROFLUAZIDE [Concomitant]
  3. XALATAN [Concomitant]
     Indication: GLAUCOMA
     Dosage: 1 DF
     Route: 047
     Dates: start: 20070601
  4. ASPIRIN [Concomitant]
     Dosage: 75 MG, QD
     Route: 048
  5. AZOPT [Concomitant]
     Indication: GLAUCOMA
     Dosage: 1 DF, TID
     Route: 047
     Dates: start: 20070601
  6. ENALAPRIL MALEATE [Concomitant]

REACTIONS (1)
  - AMNESIA [None]
